FAERS Safety Report 17086235 (Version 2)
Quarter: 2021Q4

REPORT INFORMATION
  Report Type: Spontaneous
  Country: US (occurrence: US)
  Receive Date: 20191128
  Receipt Date: 20211129
  Transmission Date: 20220303
  Serious: No
  Sender: FDA-Public Use
  Company Number: US-UCBSA-2018039145

PATIENT
  Age: 9 Year
  Sex: Female
  Weight: 31 kg

DRUGS (2)
  1. VIMPAT [Suspect]
     Active Substance: LACOSAMIDE
     Indication: Partial seizures
     Dosage: 3 ML, 2X/DAY (BID) (10 MG PER ML)
     Route: 048
     Dates: start: 2016
  2. BIOTIN [Concomitant]
     Active Substance: BIOTIN
     Indication: Product used for unknown indication
     Dosage: 1000 MG, ONCE DAILY (QD)

REACTIONS (1)
  - Blood aluminium increased [Recovered/Resolved]

NARRATIVE: CASE EVENT DATE: 20180813
